FAERS Safety Report 8008245-9 (Version None)
Quarter: 2011Q4

REPORT INFORMATION
  Report Type: 
  Country: None (occurrence: None)
  Receive Date: 20111227
  Receipt Date: 20111220
  Transmission Date: 20120403
  Serious: Yes (Hospitalization)
  Sender: FDA-Public Use
  Company Number: DE-BRISTOL-MYERS SQUIBB COMPANY-16306359

PATIENT
  Age: 21 Year
  Sex: Female

DRUGS (8)
  1. VINCRISTINE [Suspect]
     Indication: HODGKIN'S DISEASE
     Dosage: BOLUS
     Route: 065
     Dates: start: 20110810
  2. PREDNISONE [Suspect]
     Indication: HODGKIN'S DISEASE
     Dosage: LAST DOSE PRIOR TO EVENT:16AUG11
     Route: 065
     Dates: start: 20110803
  3. ADRIAMYCIN PFS [Suspect]
     Indication: HODGKIN'S DISEASE
     Dosage: LAST DOSE PRIOR TO EVENT:03AUG11
     Route: 065
     Dates: start: 20110803
  4. RITUXIMAB [Suspect]
     Indication: HODGKIN'S DISEASE
     Dosage: LAST DOSE PRIOR TO EVENT:05AUG11 D1
     Route: 042
     Dates: start: 20110802
  5. CYCLOPHOSPHAMIDE [Suspect]
     Indication: HODGKIN'S DISEASE
     Route: 065
     Dates: start: 20110803
  6. PROCARBAZINE HYDROCHLORIDE [Suspect]
     Indication: HODGKIN'S DISEASE
     Dosage: LAST DOSE PRIOR TO EVENT:09AUG11
     Route: 065
     Dates: start: 20110803
  7. ETOPOSIDE [Suspect]
     Indication: HODGKIN'S DISEASE
     Dosage: LAST DOSE PRIOR TO EVENT:05AUG11
     Route: 065
     Dates: start: 20110803
  8. BLEOMYCIN SULFATE [Suspect]
     Indication: HODGKIN'S DISEASE
     Route: 065
     Dates: start: 20110810

REACTIONS (1)
  - HERPES ZOSTER [None]
